FAERS Safety Report 14200163 (Version 2)
Quarter: 2017Q4

REPORT INFORMATION
  Report Type: Spontaneous
  Country: US (occurrence: US)
  Receive Date: 20171117
  Receipt Date: 20171120
  Transmission Date: 20180321
  Serious: Yes (Other)
  Sender: FDA-Public Use
  Company Number: US-009507513-1711USA000149

PATIENT
  Age: 16 Year
  Sex: Female
  Weight: 71.6 kg

DRUGS (1)
  1. NEXPLANON [Suspect]
     Active Substance: ETONOGESTREL
     Indication: CONTRACEPTION
     Dosage: 68 MG IMPLANT ON LEFT ARM, 3 YEAR
     Route: 059
     Dates: start: 20171020, end: 20171031

REACTIONS (2)
  - Migration of implanted drug [Recovered/Resolved]
  - Implant site scar [Unknown]

NARRATIVE: CASE EVENT DATE: 201710
